FAERS Safety Report 5892462-8 (Version None)
Quarter: 2008Q3

REPORT INFORMATION
  Report Type: 
  Country: None (occurrence: None)
  Receive Date: 20080923
  Receipt Date: 20080917
  Transmission Date: 20090109
  Serious: Yes (Hospitalization, Other)
  Sender: FDA-Public Use
  Company Number: KR-JNJFOC-20080806509

PATIENT
  Sex: Female
  Weight: 53.5 kg

DRUGS (8)
  1. PALIPERIDONE [Suspect]
     Route: 048
  2. PALIPERIDONE [Suspect]
     Route: 048
  3. PALIPERIDONE [Suspect]
     Route: 048
  4. PALIPERIDONE [Suspect]
     Indication: SCHIZOPHRENIA
     Route: 048
  5. LORAZEPAM [Concomitant]
     Indication: DRUG USE FOR UNKNOWN INDICATION
  6. CLONAZEPAM [Concomitant]
     Indication: DRUG USE FOR UNKNOWN INDICATION
  7. MAGNESIUM OXIDE [Concomitant]
     Indication: DRUG USE FOR UNKNOWN INDICATION
  8. BENZTROPINE MESYLATE [Concomitant]
     Indication: DRUG USE FOR UNKNOWN INDICATION

REACTIONS (1)
  - RHABDOMYOLYSIS [None]
